FAERS Safety Report 9110443 (Version 1)
Quarter: 2013Q1

REPORT INFORMATION
  Report Type: Spontaneous
  Country: US (occurrence: US)
  Receive Date: 20130219
  Receipt Date: 20130219
  Transmission Date: 20140127
  Serious: Yes (Other)
  Sender: FDA-Public Use
  Company Number: US-BRACCO-007638

PATIENT
  Age: 59 Year
  Sex: Male

DRUGS (3)
  1. ISOVUE 300 [Suspect]
     Indication: COMPUTERISED TOMOGRAM
     Route: 042
     Dates: start: 20120228, end: 20120228
  2. ISOVUE 300 [Suspect]
     Indication: ABDOMINAL PAIN
     Route: 042
     Dates: start: 20120228, end: 20120228
  3. ISOVUE 300 [Suspect]
     Indication: RECTAL PROLAPSE REPAIR
     Route: 042
     Dates: start: 20120228, end: 20120228

REACTIONS (1)
  - Hypersensitivity [Recovered/Resolved]
